FAERS Safety Report 7157903-7 (Version None)
Quarter: 2010Q4

REPORT INFORMATION
  Report Type: 
  Country: None (occurrence: None)
  Receive Date: 20101214
  Receipt Date: 20101209
  Transmission Date: 20110411
  Serious: Yes (Life-Threatening, Hospitalization, Other)
  Sender: FDA-Public Use
  Company Number: FR-MERCK-1012FRA00047

PATIENT
  Age: 79 Year
  Sex: Female

DRUGS (8)
  1. HYZAAR [Suspect]
     Indication: HYPERTENSION
     Route: 048
     Dates: end: 20101011
  2. FUROSEMIDE [Suspect]
     Route: 048
     Dates: end: 20101011
  3. ALLOPURINOL [Suspect]
     Route: 048
     Dates: end: 20101011
  4. METFORMIN HYDROCHLORIDE [Suspect]
     Indication: TYPE 2 DIABETES MELLITUS
     Route: 048
     Dates: end: 20101011
  5. GLICLAZIDE [Suspect]
     Route: 048
  6. SITAGLIPTIN PHOSPHATE [Suspect]
     Indication: TYPE 2 DIABETES MELLITUS
     Route: 048
     Dates: end: 20101011
  7. AMILORIDE HYDROCHLORIDE [Suspect]
     Route: 048
     Dates: end: 20101011
  8. ATENOLOL [Suspect]
     Route: 048

REACTIONS (4)
  - DEHYDRATION [None]
  - HYPERKALAEMIA [None]
  - LACTIC ACIDOSIS [None]
  - RENAL FAILURE ACUTE [None]
